FAERS Safety Report 24065957 (Version 1)
Quarter: 2024Q3

REPORT INFORMATION
  Report Type: Spontaneous
  Country: US (occurrence: None)
  Receive Date: 20240709
  Receipt Date: 20240709
  Transmission Date: 20241016
  Serious: Yes (Hospitalization)
  Sender: Public
  Company Number: None

PATIENT
  Age: 79 Year
  Sex: Male
  Weight: 103.7 kg

DRUGS (4)
  1. DARATUMUMAB\HYALURONIDASE-FIHJ [Suspect]
     Active Substance: DARATUMUMAB\HYALURONIDASE-FIHJ
     Dates: end: 20240605
  2. DEXAMETHASONE [Suspect]
     Active Substance: DEXAMETHASONE
     Dates: end: 20240605
  3. DEXAMETHASONE [Suspect]
     Active Substance: DEXAMETHASONE
  4. LENALIDOMIDE [Suspect]
     Active Substance: LENALIDOMIDE
     Dates: end: 20240611

REACTIONS (4)
  - Acute left ventricular failure [None]
  - Respiratory failure [None]
  - Atrial fibrillation [None]
  - Acute myocardial infarction [None]

NARRATIVE: CASE EVENT DATE: 20240612
